FAERS Safety Report 4940740-9 (Version None)
Quarter: 2006Q1

REPORT INFORMATION
  Report Type: 
  Country: None (occurrence: None)
  Receive Date: 20060313
  Receipt Date: 20050628
  Transmission Date: 20060701
  Serious: Yes (Hospitalization, Other)
  Sender: FDA-Public Use
  Company Number: PHNU2005DE02404

PATIENT
  Age: 41 Year
  Sex: Male

DRUGS (5)
  1. CLOZAPINE [Suspect]
     Indication: DELUSIONAL DISORDER, PERSECUTORY TYPE
     Dosage: UP TO 400 MG/DAY
     Route: 048
     Dates: start: 19980101
  2. RISPERIDONE [Concomitant]
     Dosage: 2.5 MG, QD
     Route: 048
  3. METOPROLOL [Concomitant]
     Dosage: 0.5 MG, QD
     Route: 048
  4. RAMIPRIL [Concomitant]
     Dosage: 2.5 MG, QD
     Route: 048
  5. BORNAPRINE [Concomitant]
     Dosage: 4 MG, QD
     Route: 048

REACTIONS (7)
  - APHASIA [None]
  - CEREBRAL INFARCTION [None]
  - CEREBRAL ISCHAEMIA [None]
  - COMPUTERISED TOMOGRAM ABNORMAL [None]
  - CONFUSIONAL STATE [None]
  - LUMBAR PUNCTURE ABNORMAL [None]
  - NEUROBORRELIOSIS [None]
